FAERS Safety Report 15534904 (Version 1)
Quarter: 2018Q4

REPORT INFORMATION
  Report Type: Spontaneous
  Country: US (occurrence: US)
  Receive Date: 20181022
  Receipt Date: 20181022
  Transmission Date: 20190205
  Serious: Yes (Other)
  Sender: FDA-Public Use
  Company Number: US-BAUSCH-BL-2017-030531

PATIENT
  Sex: Female

DRUGS (1)
  1. NEOMYCIN AND POLYMYXIN B SULFATES AND DEXAMETHASONE OPHTHALMIC SUSPENS [Suspect]
     Active Substance: DEXAMETHASONE\NEOMYCIN\POLYMYXIN B SULFATE
     Indication: EYE INFLAMMATION
     Route: 047
     Dates: start: 20171004, end: 201710

REACTIONS (1)
  - Cataract subcapsular [Not Recovered/Not Resolved]
